FAERS Safety Report 21493500 (Version 1)
Quarter: 2022Q4

REPORT INFORMATION
  Report Type: Spontaneous
  Country: CA (occurrence: CA)
  Receive Date: 20221021
  Receipt Date: 20221021
  Transmission Date: 20230113
  Serious: Yes (Other)
  Sender: FDA-Public Use
  Company Number: CA-AMGEN-CANSP2022179276

PATIENT
  Sex: Female

DRUGS (1)
  1. PROLIA [Suspect]
     Active Substance: DENOSUMAB
     Indication: Product used for unknown indication
     Dosage: UNK
     Route: 065
     Dates: start: 2011

REACTIONS (8)
  - Nephrolithiasis [Unknown]
  - Chest pain [Unknown]
  - Blood pressure increased [Unknown]
  - Dry skin [Unknown]
  - Fatigue [Unknown]
  - Constipation [Recovered/Resolved]
  - Urinary tract infection [Unknown]
  - Bone pain [Unknown]
